FAERS Safety Report 8167473-2 (Version None)
Quarter: 2012Q1

REPORT INFORMATION
  Report Type: 
  Country: None (occurrence: None)
  Receive Date: 20120227
  Receipt Date: 20120222
  Transmission Date: 20120608
  Serious: Yes (Hospitalization)
  Sender: FDA-Public Use
  Company Number: JP-PFIZER INC-2012046134

PATIENT
  Age: 77 Year
  Sex: Male

DRUGS (4)
  1. SULFASALAZINE [Suspect]
     Indication: ERYTHEMA NODOSUM
     Dosage: 2000 MG/DAY
  2. TOCILIZUMAB [Suspect]
     Indication: ERYTHEMA NODOSUM
     Dosage: 520 MG, MONTHLY
     Route: 041
  3. COLCHICINE [Suspect]
     Indication: ERYTHEMA NODOSUM
     Dosage: 1 MG, UNK
  4. PREDNISOLONE [Suspect]
     Indication: ERYTHEMA NODOSUM
     Dosage: UNK
     Route: 048
     Dates: start: 20090901

REACTIONS (1)
  - PANNICULITIS [None]
